FAERS Safety Report 24778559 (Version 3)
Quarter: 2025Q4

REPORT INFORMATION
  Report Type: Spontaneous
  Country: US (occurrence: US)
  Receive Date: 20241226
  Receipt Date: 20251009
  Transmission Date: 20260118
  Serious: Yes (Other)
  Sender: SANOFI AVENTIS
  Company Number: US-SA-2024SA380790

PATIENT
  Age: 2 Year
  Sex: Female

DRUGS (2)
  1. DUPIXENT [Suspect]
     Active Substance: DUPILUMAB
     Indication: Dermatitis atopic
     Dosage: UNK UNK, 1X
  2. DUPIXENT [Suspect]
     Active Substance: DUPILUMAB
     Dosage: 200 MG, Q4W
     Route: 058
     Dates: start: 202412

REACTIONS (6)
  - Angioedema [Unknown]
  - Rash macular [Unknown]
  - Therapeutic response shortened [Unknown]
  - Dermatitis atopic [Recovering/Resolving]
  - Eczema [Unknown]
  - Erythema [Unknown]

NARRATIVE: CASE EVENT DATE: 20250501
